FAERS Safety Report 12217414 (Version 1)
Quarter: 2016Q1

REPORT INFORMATION
  Report Type: Spontaneous
  Country: US (occurrence: US)
  Receive Date: 20160329
  Receipt Date: 20160329
  Transmission Date: 20160526
  Serious: Yes (Hospitalization, Other)
  Sender: FDA-Public Use
  Company Number: US-JNJFOC-20160320859

PATIENT
  Sex: Male

DRUGS (1)
  1. INVOKANA [Suspect]
     Active Substance: CANAGLIFLOZIN
     Indication: DIABETES MELLITUS MANAGEMENT
     Route: 048
     Dates: start: 201504, end: 201507

REACTIONS (5)
  - Neuropathy peripheral [Unknown]
  - Acute kidney injury [Unknown]
  - Diabetic ketoacidosis [Unknown]
  - Upper gastrointestinal haemorrhage [Unknown]
  - Leukopenia [Unknown]

NARRATIVE: CASE EVENT DATE: 201507
